FAERS Safety Report 7859623-X (Version None)
Quarter: 2011Q4

REPORT INFORMATION
  Report Type: 
  Country: None (occurrence: None)
  Receive Date: 20111027
  Receipt Date: 20111011
  Transmission Date: 20120403
  Serious: Yes (Hospitalization, Other)
  Sender: FDA-Public Use
  Company Number: US-BAYER-2011-021247

PATIENT
  Age: 31 Year
  Sex: Female

DRUGS (18)
  1. PROAIR HFA [Concomitant]
     Dosage: UNK
     Dates: start: 20080101
  2. SUCRALFATE [Concomitant]
     Dosage: 1 G, QID
     Dates: start: 20080123
  3. PREVACID [Concomitant]
     Indication: GASTROOESOPHAGEAL REFLUX DISEASE
     Dosage: UNK
     Dates: start: 20080201
  4. HYDROCODONE BITARTRATE AND ACETAMINOPHEN [Concomitant]
     Indication: PLEURISY
     Dosage: UNK
     Dates: start: 20080402, end: 20080422
  5. LIDODERM [Concomitant]
     Indication: PLEURISY
     Dosage: UNK
     Route: 062
     Dates: start: 20080402, end: 20080422
  6. ALDARA [Concomitant]
     Dosage: 5 %, UNK
     Dates: start: 20080117
  7. PREDNISONE [Concomitant]
     Indication: PLEURISY
     Dosage: UNK
     Dates: start: 20080407, end: 20080422
  8. YAZ [Suspect]
     Indication: CONTRACEPTION
     Dosage: UNK
     Dates: start: 20071101, end: 20080401
  9. AZITHROMYCIN [Concomitant]
     Indication: PLEURISY
     Dosage: UNK
     Dates: start: 20080201
  10. PROPOXYPHENE NAPSYLATE W/PARACETAMOL [Concomitant]
     Dosage: UNK
     Route: 048
     Dates: start: 20080302
  11. PROAIR HFA [Concomitant]
     Dosage: UNK
     Route: 055
     Dates: start: 20080301
  12. VIGAMOX [Concomitant]
     Dosage: UNK
     Dates: start: 20080129
  13. PROMETHAZINE [Concomitant]
     Dosage: 25 MG, TID
     Dates: start: 20080302
  14. AZITHROMYCIN [Concomitant]
     Dosage: UNK
     Dates: start: 20080402
  15. REGLAN [Concomitant]
     Indication: GASTROOESOPHAGEAL REFLUX DISEASE
     Dosage: UNK
     Dates: start: 20080209
  16. LEVAQUIN [Concomitant]
     Dosage: 750 MG, QD
     Route: 048
     Dates: start: 20080414
  17. ISOMETHEPTENE/DICHLORALPHENAZONE/APAP [Concomitant]
     Dosage: UNK
     Dates: start: 20080111
  18. NAPROXEN [Concomitant]
     Indication: PLEURISY
     Dosage: UNK
     Dates: start: 20080402, end: 20080422

REACTIONS (3)
  - CHEST PAIN [None]
  - PULMONARY EMBOLISM [None]
  - DYSPNOEA [None]
